FAERS Safety Report 22161473 (Version 2)
Quarter: 2023Q2

REPORT INFORMATION
  Report Type: Spontaneous
  Country: US (occurrence: US)
  Receive Date: 20230331
  Receipt Date: 20230605
  Transmission Date: 20230722
  Serious: Yes (Other)
  Sender: FDA-Public Use
  Company Number: US-PFIZER INC-PV202300057678

PATIENT
  Age: 59 Year
  Sex: Male

DRUGS (1)
  1. XELJANZ [Suspect]
     Active Substance: TOFACITINIB CITRATE
     Indication: Colitis ulcerative
     Dosage: 10 MG, 2X/DAY
     Route: 048
     Dates: start: 20230118

REACTIONS (6)
  - Haematochezia [Unknown]
  - Frequent bowel movements [Unknown]
  - Drug ineffective [Unknown]
  - Sleep disorder due to general medical condition, insomnia type [Unknown]
  - Diarrhoea [Unknown]
  - Haemorrhoids [Unknown]
